FAERS Safety Report 5714201-3 (Version None)
Quarter: 2008Q2

REPORT INFORMATION
  Report Type: 
  Country: None (occurrence: None)
  Receive Date: 20080423
  Receipt Date: 20071108
  Transmission Date: 20081010
  Serious: No
  Sender: FDA-Public Use
  Company Number: US-KINGPHARMUSA00001-K200701440

PATIENT

DRUGS (2)
  1. SKELAXIN [Suspect]
     Indication: BACK DISORDER
     Dosage: 800 MG, QD
     Route: 048
     Dates: start: 20071107, end: 20071108
  2. ZOLOFT [Concomitant]
     Indication: DEPRESSION
     Dosage: 150 MG, QD

REACTIONS (2)
  - FATIGUE [None]
  - RESTLESSNESS [None]
